FAERS Safety Report 4395567-6 (Version None)
Quarter: 2004Q3

REPORT INFORMATION
  Report Type: 
  Country: None (occurrence: None)
  Receive Date: 20040709
  Receipt Date: 20040629
  Transmission Date: 20050211
  Serious: Yes (Other)
  Sender: FDA-Public Use
  Company Number: 2004043842

PATIENT
  Age: 46 Year
  Sex: Female
  Weight: 60.3284 kg

DRUGS (4)
  1. ZYRTEC [Suspect]
     Indication: POSTNASAL DRIP
     Dosage: (10 MG), ORAL
     Route: 048
     Dates: end: 20040601
  2. HYDROCHLOROTHIAZIDE [Suspect]
     Indication: HYPERTENSION
     Dosage: 25 MG, ORAL
     Route: 048
     Dates: start: 20030101
  3. ALPRAZOLAM [Concomitant]
  4. AZELASTINE HCL [Concomitant]

REACTIONS (5)
  - BIOPSY VAGINA ABNORMAL [None]
  - HYPERTENSION [None]
  - PARAESTHESIA [None]
  - PHOTOSENSITIVITY REACTION [None]
  - PRECANCEROUS CELLS PRESENT [None]
